FAERS Safety Report 13410160 (Version 2)
Quarter: 2017Q2

REPORT INFORMATION
  Report Type: Spontaneous
  Country: DO (occurrence: DO)
  Receive Date: 20170406
  Receipt Date: 20170616
  Transmission Date: 20170830
  Serious: Yes (Life-Threatening)
  Sender: FDA-Public Use
  Company Number: DO-ABBVIE-17P-279-1935172-00

PATIENT
  Age: 4 Year

DRUGS (3)
  1. EPIVAL [Suspect]
     Active Substance: DIVALPROEX SODIUM
     Indication: EPILEPSY
     Route: 048
  2. KOPODEX [Suspect]
     Active Substance: LEVETIRACETAM
     Indication: EPILEPSY
     Route: 048
  3. EPIVAL [Suspect]
     Active Substance: DIVALPROEX SODIUM
     Route: 048

REACTIONS (2)
  - Substance-induced psychotic disorder [Unknown]
  - Drug ineffective [Unknown]
